FAERS Safety Report 4777582-3 (Version None)
Quarter: 2005Q3

REPORT INFORMATION
  Report Type: 
  Country: None (occurrence: None)
  Receive Date: 20050921
  Receipt Date: 20050906
  Transmission Date: 20060218
  Serious: Yes (Other)
  Sender: FDA-Public Use
  Company Number: A-US2005-10485

PATIENT
  Age: 2 Year
  Sex: Male
  Weight: 9.3 kg

DRUGS (13)
  1. ZAVESCA [Suspect]
     Indication: TAY-SACHS DISEASE
     Dosage: SEE IMAGE
     Route: 048
     Dates: start: 20050625, end: 20050707
  2. ZAVESCA [Suspect]
     Indication: TAY-SACHS DISEASE
     Dosage: SEE IMAGE
     Route: 048
     Dates: start: 20050708, end: 20050715
  3. ZAVESCA [Suspect]
     Indication: TAY-SACHS DISEASE
     Dosage: SEE IMAGE
     Route: 048
     Dates: start: 20050716
  4. ACYCLOVIR [Concomitant]
  5. AMLODIPINE [Concomitant]
  6. CYCLOSPORINE [Concomitant]
  7. HYDROCORTISONE [Concomitant]
  8. IMMUNOGLOBULINS (IMMUNOGLOBULINS) [Concomitant]
  9. MAGNESIUM OXIDE (MAGNESIUM OXIDE) [Concomitant]
  10. PENTAMIDINE (PENTAMIDINE) [Concomitant]
  11. POLY-VI-SOL (RIBOFLAVIN, RETINOL, NICOTINAMIDE, ERGOCALCIFEROL, ASCORB [Concomitant]
  12. PRILOSEC [Concomitant]
  13. FLUCONAZOLE [Concomitant]

REACTIONS (2)
  - CONVULSION [None]
  - DIARRHOEA [None]
